FAERS Safety Report 9353193 (Version 1)
Quarter: 2013Q2

REPORT INFORMATION
  Report Type: Spontaneous
  Country: US (occurrence: US)
  Receive Date: 20130618
  Receipt Date: 20130618
  Transmission Date: 20140414
  Serious: No
  Sender: FDA-Public Use
  Company Number: US-PFIZER INC-2013181559

PATIENT
  Age: 70 Year
  Sex: 0

DRUGS (2)
  1. RELPAX [Suspect]
     Dosage: 20 MG, AS NEEDED (PRN)
  2. CYCLOSPORINE [Suspect]
     Dosage: UNK

REACTIONS (1)
  - Drug hypersensitivity [Unknown]
